FAERS Safety Report 9476422 (Version 1)
Quarter: 2013Q3

REPORT INFORMATION
  Report Type: Spontaneous
  Country: US (occurrence: None)
  Receive Date: 20130823
  Receipt Date: 20130823
  Transmission Date: 20140515
  Serious: Yes (Hospitalization)
  Sender: FDA-Public Use
  Company Number: None

PATIENT
  Age: 88 Year
  Sex: Female
  Weight: 72.5 kg

DRUGS (1)
  1. WARFARIN SODIUM [Suspect]
     Indication: ATRIAL FIBRILLATION
     Dosage: OVER 6 MONTHS, 6MG, DAILY, BY MOUTH
     Route: 048

REACTIONS (5)
  - Dehydration [None]
  - Anaemia [None]
  - International normalised ratio increased [None]
  - Blood urea increased [None]
  - Blood creatinine increased [None]
